FAERS Safety Report 24223268 (Version 1)
Quarter: 2024Q3

REPORT INFORMATION
  Report Type: Spontaneous
  Country: US (occurrence: None)
  Receive Date: 20240816
  Receipt Date: 20240816
  Transmission Date: 20241016
  Serious: Yes (Other)
  Sender: Public
  Company Number: None

PATIENT
  Age: 31 Year
  Sex: Male
  Weight: 65.25 kg

DRUGS (2)
  1. TECOVIRIMAT [Suspect]
     Active Substance: TECOVIRIMAT
     Dosage: OTHER QUANTITY : 30 TABLET(S);?FREQUENCY : EVERY 12 HOURS;?
     Route: 048
  2. ODEFSEY [Concomitant]
     Active Substance: EMTRICITABINE\RILPIVIRINE HYDROCHLORIDE\TENOFOVIR ALAFENAMIDE FUMARATE

REACTIONS (4)
  - Metabolic disorder [None]
  - Alcohol intolerance [None]
  - Disease complication [None]
  - Alcohol intolerance [None]

NARRATIVE: CASE EVENT DATE: 20220904
